FAERS Safety Report 24814479 (Version 1)
Quarter: 2025Q1

REPORT INFORMATION
  Report Type: Spontaneous
  Country: US (occurrence: US)
  Receive Date: 20250107
  Receipt Date: 20250107
  Transmission Date: 20250408
  Serious: Yes (Hospitalization)
  Sender: MYLAN
  Company Number: US-MYLANLABS-2024M1117716

PATIENT
  Age: 43 Year
  Sex: Female

DRUGS (1)
  1. DAPTOMYCIN [Suspect]
     Active Substance: DAPTOMYCIN
     Indication: Staphylococcal bacteraemia
     Route: 042

REACTIONS (2)
  - Drug-induced liver injury [Recovered/Resolved]
  - Hypertransaminasaemia [Recovered/Resolved]
